FAERS Safety Report 5117786-3 (Version None)
Quarter: 2006Q3

REPORT INFORMATION
  Report Type: 
  Country: None (occurrence: None)
  Receive Date: 20060928
  Receipt Date: 20060928
  Transmission Date: 20061208
  Serious: Yes (Hospitalization)
  Sender: FDA-Public Use
  Company Number: None

PATIENT
  Sex: Male
  Weight: 72.9384 kg

DRUGS (1)
  1. BACTRIM DS [Suspect]
     Indication: SINUSITIS
     Dosage: 800 MG/160MG BID PO
     Route: 048
     Dates: start: 20060817, end: 20060831

REACTIONS (3)
  - SKIN DISCOLOURATION [None]
  - TONGUE DISORDER [None]
  - URTICARIA [None]
